FAERS Safety Report 6181136-4 (Version None)
Quarter: 2009Q2

REPORT INFORMATION
  Report Type: 
  Country: None (occurrence: None)
  Receive Date: 20090506
  Receipt Date: 20090427
  Transmission Date: 20091009
  Serious: Yes (Other)
  Sender: FDA-Public Use
  Company Number: PHEH2007US11263

PATIENT
  Sex: Female
  Weight: 54.422 kg

DRUGS (8)
  1. AREDIA [Suspect]
     Dates: start: 19961101, end: 20050101
  2. ZOMETA [Suspect]
     Dates: start: 20030601, end: 20051101
  3. FOSAMAX [Suspect]
     Dates: start: 19950101
  4. PROZAC [Concomitant]
  5. TAMOXIFEN CITRATE [Concomitant]
  6. NEURONTIN [Concomitant]
  7. LORTAB [Concomitant]
  8. CALCIUM [Concomitant]

REACTIONS (6)
  - APPENDICECTOMY [None]
  - EMOTIONAL DISTRESS [None]
  - INJURY [None]
  - OSTEONECROSIS [None]
  - PAIN [None]
  - SURGERY [None]
